FAERS Safety Report 8957645 (Version 2)
Quarter: 2012Q4

REPORT INFORMATION
  Report Type: Report from Study
  Country: JP (occurrence: JP)
  Receive Date: 20121210
  Receipt Date: 20121219
  Transmission Date: 20130627
  Serious: Yes (Life-Threatening)
  Sender: FDA-Public Use
  Company Number: JP-PFIZER INC-2012306925

PATIENT
  Age: 8 Year
  Sex: Female
  Weight: 17.6 kg

DRUGS (2)
  1. VFEND [Suspect]
     Indication: FUNGAL INFECTION
     Dosage: 140 mg, 2x/day
     Route: 042
     Dates: start: 20100823, end: 20100917
  2. VANCOMYCIN [Concomitant]
     Indication: INFECTION MRSA
     Dosage: 0.3 g, 4x/day
     Route: 042
     Dates: start: 20100821, end: 20100914

REACTIONS (2)
  - Ventricular extrasystoles [Recovering/Resolving]
  - Electrocardiogram QT prolonged [Recovering/Resolving]
